FAERS Safety Report 5112889-1 (Version None)
Quarter: 2006Q3

REPORT INFORMATION
  Report Type: 
  Country: None (occurrence: None)
  Receive Date: 20060921
  Receipt Date: 20060921
  Transmission Date: 20061208
  Serious: Yes (Hospitalization)
  Sender: FDA-Public Use
  Company Number: None

PATIENT
  Sex: Male
  Weight: 106 kg

DRUGS (2)
  1. BACTRIM DS [Suspect]
     Indication: BURSITIS
     Dosage: 800/600 MG BID PO
     Route: 048
     Dates: start: 20060804, end: 20060807
  2. BACTRIM DS [Suspect]
     Indication: STAPHYLOCOCCAL INFECTION
     Dosage: 800/600 MG BID PO
     Route: 048
     Dates: start: 20060804, end: 20060807

REACTIONS (1)
  - RASH [None]
